FAERS Safety Report 10104548 (Version 2)
Quarter: 2014Q2

REPORT INFORMATION
  Report Type: Report from Study
  Country: US (occurrence: US)
  Receive Date: 20140424
  Receipt Date: 20140424
  Transmission Date: 20141212
  Serious: Yes (Hospitalization)
  Sender: FDA-Public Use
  Company Number: US-SA-2014SA028404

PATIENT
  Age: 60 Year
  Sex: Male

DRUGS (6)
  1. AUBAGIO [Suspect]
     Indication: MULTIPLE SCLEROSIS
     Route: 048
     Dates: start: 20140206, end: 20140322
  2. CYMBALTA [Concomitant]
     Indication: DEPRESSION
  3. RELPAX [Concomitant]
  4. AZOR [Concomitant]
     Indication: BLOOD PRESSURE
  5. NORCO [Concomitant]
     Dosage: 4-5 X DAY
  6. ALPRAZOLAM [Concomitant]
     Indication: DEPRESSION
     Dosage: 4-DAY

REACTIONS (9)
  - Hypersensitivity [Not Recovered/Not Resolved]
  - Pruritus generalised [Not Recovered/Not Resolved]
  - Erythema [Not Recovered/Not Resolved]
  - Nausea [Recovered/Resolved]
  - Headache [Unknown]
  - Progressive multiple sclerosis [Unknown]
  - Gait disturbance [Unknown]
  - Impaired driving ability [Unknown]
  - Drug dose omission [Unknown]
